FAERS Safety Report 8356836-8 (Version None)
Quarter: 2012Q2

REPORT INFORMATION
  Report Type: 
  Country: None (occurrence: None)
  Receive Date: 20120510
  Receipt Date: 20120501
  Transmission Date: 20120825
  Serious: Yes (Other)
  Sender: FDA-Public Use
  Company Number: 2012SP023214

PATIENT
  Sex: Female

DRUGS (3)
  1. RIBAVIRIN [Suspect]
     Indication: HEPATITIS C
     Dates: start: 20111115
  2. PEGASYS [Suspect]
     Indication: HEPATITIS C
     Dates: start: 20111115
  3. VICTRELIS [Suspect]
     Indication: HEPATITIS C
     Dates: start: 20111220

REACTIONS (7)
  - NASOPHARYNGITIS [None]
  - FATIGUE [None]
  - NOCTURIA [None]
  - BRONCHITIS [None]
  - DEHYDRATION [None]
  - APHAGIA [None]
  - WEIGHT DECREASED [None]
